FAERS Safety Report 9421712 (Version 4)
Quarter: 2013Q4

REPORT INFORMATION
  Report Type: Report from Study
  Country: BR (occurrence: BR)
  Receive Date: 20130726
  Receipt Date: 20131212
  Transmission Date: 20140711
  Serious: Yes (Other)
  Sender: FDA-Public Use
  Company Number: BR-ROCHE-774195

PATIENT
  Age: 38 Year
  Sex: Female
  Weight: 82 kg

DRUGS (12)
  1. RITUXIMAB [Suspect]
     Indication: RHEUMATOID ARTHRITIS
     Dosage: LAST INFUSION:21/AUG/2013
     Route: 042
     Dates: start: 20100801, end: 201008
  2. RITUXIMAB [Suspect]
     Route: 042
     Dates: start: 201008, end: 201105
  3. RITUXIMAB [Suspect]
     Route: 042
     Dates: start: 20110510, end: 20110525
  4. RIVOTRIL [Concomitant]
     Dosage: DOSE REPORTED AS 2 MG/TAB, ONE TABLET DAILY
     Route: 048
  5. SERTRALINE [Concomitant]
     Route: 065
  6. CHLOROQUINE [Concomitant]
     Route: 065
  7. ADEROGIL D3 [Concomitant]
     Route: 065
  8. FOLIC ACID [Concomitant]
     Route: 065
  9. METHOTREXATE [Concomitant]
     Indication: LUNG INFILTRATION
     Route: 065
  10. CAPTOPRIL [Concomitant]
     Route: 065
  11. OMEPRAZOLE [Concomitant]
     Route: 065
  12. ARAVA [Concomitant]
     Route: 065

REACTIONS (14)
  - Pulmonary fibrosis [Recovering/Resolving]
  - Disease progression [Not Recovered/Not Resolved]
  - Depressed mood [Recovering/Resolving]
  - Quality of life decreased [Not Recovered/Not Resolved]
  - Hypoaesthesia [Not Recovered/Not Resolved]
  - Drug ineffective [Unknown]
  - Movement disorder [Unknown]
  - Urinary tract infection [Unknown]
  - Asthenia [Unknown]
  - Malaise [Unknown]
  - Malaise [Recovered/Resolved]
  - Nausea [Recovered/Resolved]
  - Dizziness [Recovered/Resolved]
  - Fatigue [Recovered/Resolved]
